FAERS Safety Report 4688622-4 (Version None)
Quarter: 2005Q2

REPORT INFORMATION
  Report Type: 
  Country: None (occurrence: None)
  Receive Date: 20050608
  Receipt Date: 20050131
  Transmission Date: 20051028
  Serious: No
  Sender: FDA-Public Use
  Company Number: 2005-BP-00078BP

PATIENT
  Age: 63 Year
  Sex: Male

DRUGS (15)
  1. SPIRIVA [Suspect]
     Indication: CHRONIC OBSTRUCTIVE PULMONARY DISEASE
     Dosage: 18 MCG (18 MCG, QD)
     Dates: start: 20040712
  2. ALBUTEROL [Concomitant]
  3. MICARDIS [Concomitant]
  4. MINITRAN (GLYCERYL TRINITRATE) [Concomitant]
  5. ALLOPURINOL [Concomitant]
  6. IMDUR [Concomitant]
  7. SYNTHROID [Concomitant]
  8. LIPITOR [Concomitant]
  9. AMIODARONE (AMIODARONE) [Concomitant]
  10. BUMEX [Concomitant]
  11. COUMADIN [Concomitant]
  12. ALDACTONE [Concomitant]
  13. DIGOXIN [Concomitant]
  14. POTASSIUM ACETATE [Concomitant]
  15. CHLORPROPAMIDE [Concomitant]

REACTIONS (2)
  - DRY MOUTH [None]
  - DYSPHONIA [None]
